FAERS Safety Report 21259644 (Version 1)
Quarter: 2022Q3

REPORT INFORMATION
  Report Type: Spontaneous
  Country: US (occurrence: None)
  Receive Date: 20220825
  Receipt Date: 20220825
  Transmission Date: 20221027
  Serious: Yes (unspecified)
  Sender: FDA-Public Use
  Company Number: None

PATIENT
  Age: 49 Year
  Sex: Female
  Weight: 54 kg

DRUGS (2)
  1. HIZENTRA [Suspect]
     Active Substance: HUMAN IMMUNOGLOBULIN G
     Indication: Sjogren^s syndrome
     Dosage: FREQUENCY : WEEKLY;?
     Route: 058
  2. HIZENTRA [Suspect]
     Active Substance: HUMAN IMMUNOGLOBULIN G
     Indication: Hypogammaglobulinaemia

REACTIONS (10)
  - Infusion site erythema [None]
  - Infusion site warmth [None]
  - Infusion site induration [None]
  - Petechiae [None]
  - Dizziness [None]
  - Dyspnoea [None]
  - Gastric disorder [None]
  - Pruritus [None]
  - Infusion site reaction [None]
  - Product quality issue [None]

NARRATIVE: CASE EVENT DATE: 20220823
